FAERS Safety Report 5427963-X (Version None)
Quarter: 2007Q3

REPORT INFORMATION
  Report Type: 
  Country: None (occurrence: None)
  Receive Date: 20070731
  Receipt Date: 20070521
  Transmission Date: 20080115
  Serious: No
  Sender: FDA-Public Use
  Company Number: US200705005543

PATIENT
  Age: 82 Year
  Sex: Male
  Weight: 92.5 kg

DRUGS (4)
  1. BYETTA [Suspect]
     Indication: TYPE 2 DIABETES MELLITUS
     Dosage: 5 UG, 2/D, SUBCUTANEOUS, 10 UG, SUBCUTANEOUS, 10 UG, SUBCUTANEOUS
     Route: 058
  2. BYETTA [Suspect]
     Indication: TYPE 2 DIABETES MELLITUS
     Dosage: 5 UG, 2/D, SUBCUTANEOUS, 10 UG, SUBCUTANEOUS, 10 UG, SUBCUTANEOUS
     Route: 058
     Dates: start: 20060501
  3. LANTUS [Concomitant]
  4. GLIMEPIRIDE [Concomitant]

REACTIONS (5)
  - BLOOD GLUCOSE DECREASED [None]
  - FEELING ABNORMAL [None]
  - NAUSEA [None]
  - VISUAL DISTURBANCE [None]
  - WEIGHT FLUCTUATION [None]
